FAERS Safety Report 17332522 (Version 1)
Quarter: 2020Q1

REPORT INFORMATION
  Report Type: Spontaneous
  Country: NL (occurrence: NL)
  Receive Date: 20200128
  Receipt Date: 20200128
  Transmission Date: 20200409
  Serious: Yes (Other)
  Sender: FDA-Public Use
  Company Number: NL-TEVA-2020-NL-1174046

PATIENT
  Sex: Female
  Weight: 71 kg

DRUGS (5)
  1. TAMOXIFEN [Concomitant]
     Active Substance: TAMOXIFEN
     Dosage: 1DD10MG
     Dates: start: 201908
  2. METOCLOPRAMIDE. [Concomitant]
     Active Substance: METOCLOPRAMIDE
     Dosage: ZN
  3. PARACETAMOL [Concomitant]
     Active Substance: ACETAMINOPHEN
     Dosage: ZN
  4. TAMOXIFEN [Concomitant]
     Active Substance: TAMOXIFEN
     Dosage: 20 MG
     Dates: start: 201906
  5. ZOLENDRONINEZUUR IV 4 MG/HALF JAAR [Suspect]
     Active Substance: ZOLEDRONIC ACID
     Indication: PRODUCT USED FOR UNKNOWN INDICATION
     Dosage: 1X AND A HALF YEARS 4 MG
     Dates: start: 20190912

REACTIONS (2)
  - Pyrexia [Recovered/Resolved]
  - Iridocyclitis [Recovered/Resolved]
